FAERS Safety Report 8075205-1 (Version None)
Quarter: 2012Q1

REPORT INFORMATION
  Report Type: 
  Country: None (occurrence: None)
  Receive Date: 20120127
  Receipt Date: 20120119
  Transmission Date: 20120608
  Serious: No
  Sender: FDA-Public Use
  Company Number: US-PFIZER INC-2012016776

PATIENT
  Sex: Male

DRUGS (2)
  1. TYLENOL-500 [Suspect]
     Dosage: IN THE MORNING
  2. CELEBREX [Suspect]
     Indication: OSTEOARTHRITIS
     Dosage: UNK

REACTIONS (2)
  - DIZZINESS [None]
  - PAIN [None]
